FAERS Safety Report 13054140 (Version 5)
Quarter: 2017Q1

REPORT INFORMATION
  Report Type: Report from Study
  Country: US (occurrence: US)
  Receive Date: 20161222
  Receipt Date: 20170309
  Transmission Date: 20170428
  Serious: Yes (Hospitalization)
  Sender: FDA-Public Use
  Company Number: US-EISAI MEDICAL RESEARCH-EC-2016-022126

PATIENT
  Age: 68 Year
  Sex: Female

DRUGS (22)
  1. LENVIMA [Suspect]
     Active Substance: LENVATINIB
     Indication: THYROID CANCER
     Route: 048
     Dates: start: 2017, end: 2016
  2. LENVIMA [Suspect]
     Active Substance: LENVATINIB
     Route: 048
     Dates: start: 2016, end: 2017
  3. TRAMADOL. [Concomitant]
     Active Substance: TRAMADOL
  4. LOSARTAN-HYDROCHLOROTHIAZIDE [Concomitant]
     Active Substance: HYDROCHLOROTHIAZIDE\LOSARTAN
  5. COMPAZINE [Concomitant]
     Active Substance: PROCHLORPERAZINE MALEATE
  6. TEMAZEPAM. [Concomitant]
     Active Substance: TEMAZEPAM
  7. POTASSIUM CHLORIDE. [Concomitant]
     Active Substance: POTASSIUM CHLORIDE
  8. INDOMETHACIN. [Concomitant]
     Active Substance: INDOMETHACIN
  9. CREON [Concomitant]
     Active Substance: PANCRELIPASE AMYLASE\PANCRELIPASE LIPASE\PANCRELIPASE PROTEASE
  10. BACTRIM [Concomitant]
     Active Substance: SULFAMETHOXAZOLE\TRIMETHOPRIM
  11. ATENOLOL. [Concomitant]
     Active Substance: ATENOLOL
  12. ZOFRAN [Concomitant]
     Active Substance: ONDANSETRON HYDROCHLORIDE
  13. HYDRALAZINE [Concomitant]
     Active Substance: HYDRALAZINE HYDROCHLORIDE
  14. NORVASC [Concomitant]
     Active Substance: AMLODIPINE BESYLATE
  15. LOPID [Concomitant]
     Active Substance: GEMFIBROZIL
  16. KLONOPIN [Concomitant]
     Active Substance: CLONAZEPAM
  17. LENVIMA [Suspect]
     Active Substance: LENVATINIB
     Route: 048
     Dates: start: 2017
  18. LASIX [Concomitant]
     Active Substance: FUROSEMIDE
  19. CARBAMAZEPINE. [Concomitant]
     Active Substance: CARBAMAZEPINE
  20. METFORMIN [Concomitant]
     Active Substance: METFORMIN HYDROCHLORIDE
  21. CATAPRES [Concomitant]
     Active Substance: CLONIDINE HYDROCHLORIDE
  22. SYNTHROID [Concomitant]
     Active Substance: LEVOTHYROXINE SODIUM

REACTIONS (19)
  - Alopecia [Unknown]
  - Back pain [Unknown]
  - Oral pain [Not Recovered/Not Resolved]
  - Dysphagia [Unknown]
  - Decreased appetite [Unknown]
  - Odynophagia [Unknown]
  - Balance disorder [Unknown]
  - Vomiting [Unknown]
  - Oropharyngeal pain [Unknown]
  - Fall [Unknown]
  - Nausea [Unknown]
  - Weight decreased [Not Recovered/Not Resolved]
  - Fatigue [Unknown]
  - Hypertension [Unknown]
  - Asthenia [Unknown]
  - Oedema peripheral [Not Recovered/Not Resolved]
  - Headache [Unknown]
  - Feeling cold [Unknown]
  - Thyroid function test abnormal [Not Recovered/Not Resolved]

NARRATIVE: CASE EVENT DATE: 2016
